FAERS Safety Report 16857520 (Version 1)
Quarter: 2019Q3

REPORT INFORMATION
  Report Type: Spontaneous
  Country: DE (occurrence: DE)
  Receive Date: 20190926
  Receipt Date: 20190926
  Transmission Date: 20191005
  Serious: Yes (Hospitalization, Other)
  Sender: FDA-Public Use
  Company Number: DE-PFIZER INC-2019411431

PATIENT
  Age: 57 Year
  Sex: Female
  Weight: 99 kg

DRUGS (3)
  1. MESALAZIN [Concomitant]
     Active Substance: MESALAMINE
     Dosage: UNK
  2. L-THYROXIN [LEVOTHYROXINE] [Concomitant]
     Active Substance: LEVOTHYROXINE SODIUM
     Dosage: UNK
  3. TOFACITINIB [Suspect]
     Active Substance: TOFACITINIB
     Indication: COLITIS ULCERATIVE
     Dosage: 10 MG, 2X/DAY (1-0-1 EVERY 12 HOURS)
     Route: 048

REACTIONS (1)
  - Thyroid gland abscess [Recovering/Resolving]

NARRATIVE: CASE EVENT DATE: 20190909
